FAERS Safety Report 15093324 (Version 3)
Quarter: 2018Q3

REPORT INFORMATION
  Report Type: Report from Study
  Country: DO (occurrence: DO)
  Receive Date: 20180629
  Receipt Date: 20180711
  Transmission Date: 20181010
  Serious: Yes (Hospitalization)
  Sender: FDA-Public Use
  Company Number: PHHY2017DO190134

PATIENT
  Age: 38 Year
  Sex: Female
  Weight: 64.85 kg

DRUGS (1)
  1. GILENYA [Suspect]
     Active Substance: FINGOLIMOD HYDROCHLORIDE
     Indication: MULTIPLE SCLEROSIS
     Dosage: 0.5 MG, QD (AT 8:30AM)
     Route: 065
     Dates: start: 201711

REACTIONS (13)
  - Multiple sclerosis relapse [Unknown]
  - Dysarthria [Unknown]
  - Limb discomfort [Unknown]
  - Headache [Not Recovered/Not Resolved]
  - Therapeutic product ineffective [Unknown]
  - Muscular weakness [Unknown]
  - Inflammation [Unknown]
  - Mass [Unknown]
  - Hypoaesthesia [Unknown]
  - Mastication disorder [Unknown]
  - Muscle spasms [Unknown]
  - Eye pain [Unknown]
  - Influenza [Unknown]

NARRATIVE: CASE EVENT DATE: 201712
